FAERS Safety Report 14264393 (Version 1)
Quarter: 2017Q4

REPORT INFORMATION
  Report Type: Spontaneous
  Country: US (occurrence: US)
  Receive Date: 20171208
  Receipt Date: 20171208
  Transmission Date: 20180321
  Serious: No
  Sender: FDA-Public Use
  Company Number: US-JAZZ-2017-US-011779

PATIENT
  Sex: Female

DRUGS (27)
  1. ATENOLOL. [Concomitant]
     Active Substance: ATENOLOL
  2. CLARITIN [Concomitant]
     Active Substance: LORATADINE
  3. NASACORT ALLERGY 24HR [Concomitant]
     Active Substance: TRIAMCINOLONE ACETONIDE
  4. XYREM [Suspect]
     Active Substance: SODIUM OXYBATE
     Dosage: 3.75G, BID
     Route: 048
     Dates: start: 201701, end: 2017
  5. FISH OIL [Concomitant]
     Active Substance: FISH OIL
  6. FOSAMAX [Concomitant]
     Active Substance: ALENDRONATE SODIUM
  7. RANEXA [Concomitant]
     Active Substance: RANOLAZINE
  8. ZYRTEC [Concomitant]
     Active Substance: CETIRIZINE HYDROCHLORIDE
  9. XYREM [Suspect]
     Active Substance: SODIUM OXYBATE
     Indication: APNOEA
     Dosage: 2.25G, BID
     Route: 048
     Dates: start: 201006, end: 201006
  10. KETOTIFEN FUMARATE. [Concomitant]
     Active Substance: KETOTIFEN FUMARATE
  11. CITRUCEL [Concomitant]
     Active Substance: METHYLCELLULOSE (4000 MPA.S)
  12. ALLEGRA [Concomitant]
     Active Substance: FEXOFENADINE HYDROCHLORIDE
  13. ASPIRIN                            /00002701/ [Concomitant]
     Active Substance: ASPIRIN
  14. CICLOPIROX OLAMINE. [Concomitant]
     Active Substance: CICLOPIROX OLAMINE
  15. FLAXSEED [Concomitant]
     Active Substance: FLAX SEED
  16. LIPITOR [Concomitant]
     Active Substance: ATORVASTATIN CALCIUM
  17. DULOXETINE HCL [Concomitant]
     Active Substance: DULOXETINE HYDROCHLORIDE
  18. XANAX [Concomitant]
     Active Substance: ALPRAZOLAM
  19. ALPHA LIPOIC [Concomitant]
  20. METROGEL [Concomitant]
     Active Substance: METRONIDAZOLE
  21. LEVSIN [Concomitant]
     Active Substance: HYOSCYAMINE SULFATE
  22. MAGNESIUM CHELATE [Concomitant]
     Active Substance: MAGNESIUM
  23. VAGIFEM [Concomitant]
     Active Substance: ESTRADIOL
  24. LEXAPRO [Concomitant]
     Active Substance: ESCITALOPRAM OXALATE
  25. CALCIUM CITRATE [Concomitant]
     Active Substance: CALCIUM CITRATE
  26. XYREM [Suspect]
     Active Substance: SODIUM OXYBATE
     Dosage: DOSE ADJUSMENTS
     Route: 048
     Dates: start: 201006, end: 201612
  27. DOCUSATE CALCIUM. [Concomitant]
     Active Substance: DOCUSATE CALCIUM

REACTIONS (1)
  - Off label use [Unknown]
